FAERS Safety Report 10081083 (Version 1)
Quarter: 2014Q2

REPORT INFORMATION
  Report Type: Spontaneous
  Country: HU (occurrence: HU)
  Receive Date: 20140416
  Receipt Date: 20140416
  Transmission Date: 20141212
  Serious: Yes (Other)
  Sender: FDA-Public Use
  Company Number: HU-ASTELLAS-2014US003738

PATIENT
  Age: 68 Year
  Sex: Male

DRUGS (8)
  1. TARCEVA [Suspect]
     Indication: LUNG ADENOCARCINOMA
     Route: 048
     Dates: start: 201208
  2. TARCEVA [Suspect]
     Route: 048
     Dates: start: 201208, end: 201303
  3. BEVACIZUMAB [Suspect]
     Indication: NON-SMALL CELL LUNG CANCER
     Route: 065
     Dates: start: 201003, end: 20100527
  4. BEVACIZUMAB [Suspect]
     Dosage: 7.5 MG/KG, Q3W (MONOTHERAPY)
     Route: 065
     Dates: start: 201006, end: 201207
  5. CARBOPLATIN [Suspect]
     Indication: NON-SMALL CELL LUNG CANCER
     Route: 065
     Dates: start: 201003, end: 20100527
  6. PACLITAXEL [Suspect]
     Indication: NON-SMALL CELL LUNG CANCER
     Route: 065
     Dates: start: 201003, end: 20100527
  7. DOCETAXEL [Suspect]
     Indication: NON-SMALL CELL LUNG CANCER
     Route: 065
     Dates: start: 20130426, end: 20130711
  8. DOCETAXEL [Suspect]
     Route: 065
     Dates: start: 20140206

REACTIONS (3)
  - Dermatitis [Unknown]
  - Neutropenia [Unknown]
  - Malignant neoplasm progression [Unknown]
